FAERS Safety Report 5649823-1 (Version None)
Quarter: 2008Q1

REPORT INFORMATION
  Report Type: 
  Country: None (occurrence: None)
  Receive Date: 20080304
  Receipt Date: 20080221
  Transmission Date: 20080703
  Serious: Yes (Other)
  Sender: FDA-Public Use
  Company Number: US-PFIZER INC-2008017508

PATIENT
  Sex: Female
  Weight: 100 kg

DRUGS (9)
  1. CHANTIX [Suspect]
     Indication: SMOKING CESSATION THERAPY
     Route: 048
  2. GLUCOPHAGE [Concomitant]
  3. LIPITOR [Concomitant]
  4. MORPHINE [Concomitant]
  5. OXYCODONE HCL [Concomitant]
  6. LISINOPRIL [Concomitant]
  7. PROMETHAZINE [Concomitant]
  8. INSULIN [Concomitant]
  9. LANTUS [Concomitant]

REACTIONS (1)
  - BLOOD GLUCOSE INCREASED [None]
